FAERS Safety Report 9275409 (Version 2)
Quarter: 2013Q3

REPORT INFORMATION
  Report Type: Spontaneous
  Country: US (occurrence: None)
  Receive Date: 20130214
  Receipt Date: 20130906
  Transmission Date: 20140515
  Serious: Yes (Other)
  Sender: FDA-Public Use
  Company Number: 54973 AE # 1225

PATIENT
  Age: 4 Year
  Sex: Male

DRUGS (1)
  1. HYLAND^S COLD ^N COUGH 4 KIDS LIQUID [Suspect]
     Indication: NASOPHARYNGITIS
     Dosage: 1 TEASPOON ON 01/21/13
     Dates: start: 20130112

REACTIONS (2)
  - Convulsion [None]
  - Pyrexia [None]
